FAERS Safety Report 6266456-7 (Version None)
Quarter: 2009Q3

REPORT INFORMATION
  Report Type: 
  Country: None (occurrence: None)
  Receive Date: 20090713
  Receipt Date: 20090707
  Transmission Date: 20100115
  Serious: Yes (Hospitalization, Other)
  Sender: FDA-Public Use
  Company Number: US-GENENTECH-285494

PATIENT
  Sex: Female
  Weight: 101 kg

DRUGS (6)
  1. XOLAIR [Suspect]
     Indication: ASTHMA
     Dosage: 225 MG, Q2W
     Route: 058
     Dates: start: 20050101, end: 20090609
  2. ASMANEX TWISTHALER [Concomitant]
     Indication: DRUG USE FOR UNKNOWN INDICATION
  3. ALBUTEROL [Concomitant]
     Indication: DRUG USE FOR UNKNOWN INDICATION
  4. ATARAX [Concomitant]
     Indication: DRUG USE FOR UNKNOWN INDICATION
  5. XOPENEX [Concomitant]
     Indication: DRUG USE FOR UNKNOWN INDICATION
  6. FLONASE [Concomitant]
     Indication: DRUG USE FOR UNKNOWN INDICATION

REACTIONS (3)
  - EYE SWELLING [None]
  - PRURITUS [None]
  - SENSATION OF FOREIGN BODY [None]
